FAERS Safety Report 8226381-9 (Version None)
Quarter: 2012Q1

REPORT INFORMATION
  Report Type: 
  Country: None (occurrence: None)
  Receive Date: 20120321
  Receipt Date: 20120314
  Transmission Date: 20120608
  Serious: Yes (Other)
  Sender: FDA-Public Use
  Company Number: GB-ASTRAZENECA-2012SE17525

PATIENT
  Age: 64 Year
  Sex: Male
  Weight: 67.1 kg

DRUGS (7)
  1. ANUSOL [Concomitant]
     Dates: start: 20111220
  2. OMEPRAZOLE [Suspect]
     Route: 048
     Dates: start: 20120302
  3. OMEPRAZOLE [Suspect]
     Route: 048
     Dates: start: 20111014, end: 20111209
  4. ASPIRIN [Concomitant]
     Dates: start: 20111130, end: 20111228
  5. METOCLOPRAMIDE [Concomitant]
     Dates: start: 20120203
  6. SIMVASTATIN [Concomitant]
     Dates: start: 20111107, end: 20120210
  7. ESOMEPRAZOLE SODIUM [Concomitant]
     Dates: start: 20120203, end: 20120302

REACTIONS (2)
  - PALPITATIONS [None]
  - SUPRAVENTRICULAR EXTRASYSTOLES [None]
